FAERS Safety Report 5857463-4 (Version None)
Quarter: 2008Q3

REPORT INFORMATION
  Report Type: 
  Country: None (occurrence: None)
  Receive Date: 20080825
  Receipt Date: 20080825
  Transmission Date: 20090109
  Serious: No
  Sender: FDA-Public Use
  Company Number: None

PATIENT
  Age: 46 Year
  Sex: Male
  Weight: 92.9874 kg

DRUGS (1)
  1. AVANDIA [Suspect]
     Indication: TYPE 2 DIABETES MELLITUS
     Dosage: 1 X DAY PO
     Route: 048
     Dates: start: 20000801, end: 20071015

REACTIONS (2)
  - BONE DENSITY DECREASED [None]
  - SPINAL COMPRESSION FRACTURE [None]
